FAERS Safety Report 17870520 (Version 5)
Quarter: 2022Q4

REPORT INFORMATION
  Report Type: Spontaneous
  Country: US (occurrence: US)
  Receive Date: 20200608
  Receipt Date: 20221216
  Transmission Date: 20230113
  Serious: No
  Sender: FDA-Public Use
  Company Number: US-PFIZER INC-2020221868

PATIENT
  Age: 63 Year
  Sex: Female
  Weight: 54.43 kg

DRUGS (4)
  1. XELJANZ XR [Suspect]
     Active Substance: TOFACITINIB CITRATE
     Indication: Rheumatoid arthritis
     Dosage: 11 MG, DAILY
     Route: 048
     Dates: start: 202002
  2. XELJANZ XR [Suspect]
     Active Substance: TOFACITINIB CITRATE
     Dosage: 11 MG, DAILY
     Dates: end: 202209
  3. XELJANZ XR [Suspect]
     Active Substance: TOFACITINIB CITRATE
     Dosage: 11 MG
  4. GABAPENTIN [Concomitant]
     Active Substance: GABAPENTIN
     Dosage: UNK

REACTIONS (9)
  - Drug ineffective [Unknown]
  - Condition aggravated [Unknown]
  - Diarrhoea [Unknown]
  - Flatulence [Unknown]
  - Nausea [Unknown]
  - Pain [Unknown]
  - COVID-19 [Recovered/Resolved]
  - Dysphonia [Unknown]
  - Expired product administered [Unknown]

NARRATIVE: CASE EVENT DATE: 20200101
